FAERS Safety Report 11713904 (Version 6)
Quarter: 2016Q4

REPORT INFORMATION
  Report Type: Spontaneous
  Country: US (occurrence: US)
  Receive Date: 20151109
  Receipt Date: 20161214
  Transmission Date: 20170206
  Serious: Yes (Congenital Anomaly, Other)
  Sender: FDA-Public Use
  Company Number: PHEH2015US022735

PATIENT
  Sex: Female

DRUGS (2)
  1. ZOFRAN [Suspect]
     Active Substance: ONDANSETRON HYDROCHLORIDE
     Indication: FOETAL EXPOSURE DURING PREGNANCY
     Route: 064
  2. ONDANSETRON [Suspect]
     Active Substance: ONDANSETRON
     Indication: FOETAL EXPOSURE DURING PREGNANCY
     Dosage: MOTHER^S DOSE: 04 MG, PRN
     Route: 064

REACTIONS (29)
  - Congenital anomaly [Unknown]
  - Heart disease congenital [Unknown]
  - Bundle branch block [Unknown]
  - Multiple congenital abnormalities [Unknown]
  - Fallot^s tetralogy [Unknown]
  - Congenital hypothyroidism [Unknown]
  - Haemoglobinopathy [Unknown]
  - Pain [Unknown]
  - Anhedonia [Unknown]
  - Scar [Unknown]
  - Cardiac murmur [Unknown]
  - Upper respiratory tract infection [Unknown]
  - Emotional distress [Unknown]
  - Transposition of the great vessels [Unknown]
  - Injury [Unknown]
  - Otitis media [Unknown]
  - Hypoplastic left heart syndrome [Unknown]
  - Viral infection [Unknown]
  - Pharyngitis [Unknown]
  - Adrenogenital syndrome [Unknown]
  - Foetal exposure during pregnancy [Unknown]
  - Ophthalmia neonatorum [Unknown]
  - Vaginal haemorrhage [Unknown]
  - Sinusitis [Unknown]
  - Atrial septal defect [Unknown]
  - Ventricular septal defect [Unknown]
  - Cystic fibrosis [Unknown]
  - Hypoplastic right heart syndrome [Unknown]
  - Anxiety [Unknown]
